FAERS Safety Report 4816681-4 (Version None)
Quarter: 2005Q4

REPORT INFORMATION
  Report Type: 
  Country: None (occurrence: None)
  Receive Date: 20051031
  Receipt Date: 20051031
  Transmission Date: 20060501
  Serious: Yes (Hospitalization, Disabling, Other)
  Sender: FDA-Public Use
  Company Number: None

PATIENT
  Age: 39 Year
  Sex: Male
  Weight: 78.0187 kg

DRUGS (3)
  1. CIPRO XR [Suspect]
     Indication: CYSTITIS
     Dosage: ONE DAY PO
     Route: 048
     Dates: start: 20050711, end: 20050806
  2. CIPRO XR [Suspect]
     Indication: PROSTATITIS
     Dosage: ONE DAY PO
     Route: 048
     Dates: start: 20050711, end: 20050806
  3. LEVAQUIN [Suspect]
     Dosage: ONE DAY PO
     Route: 048
     Dates: start: 20050816, end: 20050830

REACTIONS (8)
  - ABDOMINAL DISCOMFORT [None]
  - ASTHENIA [None]
  - BURNING SENSATION [None]
  - DIZZINESS [None]
  - DYSPNOEA [None]
  - NERVOUS SYSTEM DISORDER [None]
  - SENSATION OF FOREIGN BODY [None]
  - TREMOR [None]
